FAERS Safety Report 12658229 (Version 1)
Quarter: 2016Q3

REPORT INFORMATION
  Report Type: Report from Study
  Country: MX (occurrence: MX)
  Receive Date: 20160817
  Receipt Date: 20160817
  Transmission Date: 20161109
  Serious: Yes (Other)
  Sender: FDA-Public Use
  Company Number: MX-ORION CORPORATION ORION PHARMA-ENTC2012-0184

PATIENT
  Age: 67 Year
  Sex: Male

DRUGS (9)
  1. AKINETON [Concomitant]
     Active Substance: BIPERIDEN HYDROCHLORIDE
     Route: 065
     Dates: start: 20120519
  2. SIFROL [Concomitant]
     Active Substance: PRAMIPEXOLE
     Route: 065
  3. ASPIRINA PROTECT [Concomitant]
     Active Substance: ASPIRIN
     Route: 065
  4. STALEVO [Suspect]
     Active Substance: CARBIDOPA\ENTACAPONE\LEVODOPA
     Dosage: STRENGTH: 50/12.5/200 MG
     Route: 048
     Dates: start: 201508, end: 20151017
  5. CASODEX [Concomitant]
     Active Substance: BICALUTAMIDE
     Route: 065
     Dates: start: 20090101
  6. PK-MERZ [Concomitant]
     Active Substance: AMANTADINE
     Route: 065
  7. ZYPREXA [Concomitant]
     Active Substance: OLANZAPINE
     Route: 065
  8. STALEVO [Suspect]
     Active Substance: CARBIDOPA\ENTACAPONE\LEVODOPA
     Indication: PARKINSON^S DISEASE
     Route: 065
     Dates: start: 201112
  9. STALEVO [Suspect]
     Active Substance: CARBIDOPA\ENTACAPONE\LEVODOPA
     Route: 065
     Dates: end: 201406

REACTIONS (10)
  - Aggression [Unknown]
  - Chromaturia [Recovered/Resolved]
  - Hallucination [Not Recovered/Not Resolved]
  - Product supply issue [Unknown]
  - Wrong technique in product usage process [Unknown]
  - Somnolence [Recovered/Resolved]
  - Fatigue [Unknown]
  - Hypersomnia [Unknown]
  - Urinary incontinence [Unknown]
  - Depressed mood [Unknown]

NARRATIVE: CASE EVENT DATE: 20120401
